FAERS Safety Report 6779823-X (Version None)
Quarter: 2010Q2

REPORT INFORMATION
  Report Type: 
  Country: None (occurrence: None)
  Receive Date: 20100618
  Receipt Date: 20100614
  Transmission Date: 20101027
  Serious: Yes (Other)
  Sender: FDA-Public Use
  Company Number: US-PFIZER INC-2009168944

PATIENT
  Sex: Female
  Weight: 64 kg

DRUGS (10)
  1. LIPITOR [Suspect]
     Indication: DYSLIPIDAEMIA
     Dosage: 10 MG, 1X/DAY
     Route: 048
     Dates: start: 20030604
  2. LIPITOR [Suspect]
     Dosage: 40 MG, 1X/DAY
     Route: 048
     Dates: end: 20080210
  3. GLIPIZIDE [Concomitant]
     Dosage: 10 MG, 1X/DAY
  4. ENALAPRIL [Concomitant]
     Dosage: 20 MG, 1X/DAY
     Route: 048
  5. GLUCOPHAGE [Concomitant]
     Dosage: 850 MG, 2X/DAY
     Route: 048
  6. SOMA [Concomitant]
     Dosage: 350 MG, 1X/DAY
     Route: 048
  7. ELAVIL [Concomitant]
     Dosage: 25 MG, 1X/DAY
     Route: 048
  8. ULTRAM [Concomitant]
     Dosage: 50 MG, 4X/DAY
  9. TOPROL-XL [Concomitant]
     Dosage: 100 MG, 2X/DAY
  10. METFORMIN [Concomitant]
     Dosage: 500 MG, 2X/DAY

REACTIONS (3)
  - CARDIAC DISORDER [None]
  - FIBROMYALGIA [None]
  - MUSCLE INJURY [None]
